FAERS Safety Report 9171668 (Version 2)
Quarter: 2013Q3

REPORT INFORMATION
  Report Type: Spontaneous
  Country: None (occurrence: None)
  Receive Date: 20130313
  Receipt Date: 20130702
  Transmission Date: 20140515
  Serious: Yes (Hospitalization, Other)
  Sender: FDA-Public Use
  Company Number: 2013P1002949

PATIENT
  Age: 43 Year
  Sex: Female

DRUGS (2)
  1. INFUMORPH [Suspect]
     Indication: PAIN
  2. INFUMORPH [Suspect]
     Indication: INTERVERTEBRAL DISC DEGENERATION

REACTIONS (4)
  - Device power source issue [None]
  - Drug withdrawal syndrome [None]
  - Pain [None]
  - Device breakage [None]
